FAERS Safety Report 5377200-X (Version None)
Quarter: 2007Q3

REPORT INFORMATION
  Report Type: 
  Country: None (occurrence: None)
  Receive Date: 20070703
  Receipt Date: 20070623
  Transmission Date: 20080115
  Serious: Yes (Hospitalization, Other)
  Sender: FDA-Public Use
  Company Number: US-AMGEN-STX216089

PATIENT
  Sex: Female
  Weight: 109 kg

DRUGS (4)
  1. ENBREL [Suspect]
     Indication: PSORIATIC ARTHROPATHY
     Route: 058
     Dates: start: 20061122
  2. METHOTREXATE [Concomitant]
     Route: 065
     Dates: start: 20060820, end: 20070301
  3. TYLENOL W/ CODEINE NO. 3 [Concomitant]
     Route: 065
  4. XANAX [Concomitant]
     Route: 065

REACTIONS (9)
  - ACUTE MYELOID LEUKAEMIA [None]
  - ASTHENIA [None]
  - DRUG ERUPTION [None]
  - GASTRIC ULCER [None]
  - MUCOSAL INFLAMMATION [None]
  - NAUSEA [None]
  - NEUTROPENIA [None]
  - OESOPHAGEAL ULCER [None]
  - PNEUMONIA [None]
